FAERS Safety Report 4764770-5 (Version None)
Quarter: 2005Q3

REPORT INFORMATION
  Report Type: 
  Country: None (occurrence: None)
  Receive Date: 20050907
  Receipt Date: 20050830
  Transmission Date: 20060218
  Serious: Yes (Hospitalization)
  Sender: FDA-Public Use
  Company Number: 163-20785-05080079

PATIENT
  Age: 53 Year
  Sex: Male

DRUGS (5)
  1. THALOMID [Suspect]
     Indication: MULTIPLE MYELOMA
     Dosage: 200 MG, DAILY, ORAL
     Route: 048
     Dates: start: 20040922
  2. TEGRETOL [Concomitant]
  3. KEPPRA [Concomitant]
  4. ATIVAN [Concomitant]
  5. VICODIN [Concomitant]

REACTIONS (5)
  - BONE DISORDER [None]
  - CONVULSION [None]
  - MENINGEAL DISORDER [None]
  - SOMNOLENCE [None]
  - TREATMENT NONCOMPLIANCE [None]
